FAERS Safety Report 9780469 (Version 1)
Quarter: 2013Q4

REPORT INFORMATION
  Report Type: Spontaneous
  Country: US (occurrence: US)
  Receive Date: 20131224
  Receipt Date: 20131224
  Transmission Date: 20140711
  Serious: No
  Sender: FDA-Public Use
  Company Number: US-BIOGENIDEC-2013BI122971

PATIENT
  Sex: Male

DRUGS (14)
  1. AVONEX [Suspect]
     Indication: MULTIPLE SCLEROSIS
     Route: 030
     Dates: start: 20130320
  2. GILENYA [Concomitant]
  3. DEXILANT [Concomitant]
     Indication: GASTROOESOPHAGEAL REFLUX DISEASE
  4. ZEGERID [Concomitant]
  5. DILANTIN [Concomitant]
  6. RISPERDAL [Concomitant]
  7. CYMBALTA [Concomitant]
  8. LEXAPRO [Concomitant]
  9. DIAZEPAM [Concomitant]
  10. FLOMAX [Concomitant]
  11. TYLENOL [Concomitant]
  12. DICYCLOMINE [Concomitant]
  13. COLACE [Concomitant]
  14. OXYBUTININ [Concomitant]

REACTIONS (2)
  - Drug intolerance [Unknown]
  - Multiple sclerosis relapse [Unknown]
